FAERS Safety Report 7032417-3 (Version None)
Quarter: 2010Q4

REPORT INFORMATION
  Report Type: 
  Country: None (occurrence: None)
  Receive Date: 20101007
  Receipt Date: 20100927
  Transmission Date: 20110411
  Serious: Yes (Disabling, Other)
  Sender: FDA-Public Use
  Company Number: CA-JNJFOC-20100908013

PATIENT
  Sex: Male
  Weight: 74 kg

DRUGS (7)
  1. DARUNAVIR [Suspect]
     Indication: HIV INFECTION
     Route: 048
  2. RITONAVIR [Concomitant]
     Indication: HIV INFECTION
  3. TYLENOL [Concomitant]
     Indication: PAIN
  4. CLONAZEPAM [Concomitant]
     Indication: RESTLESS LEGS SYNDROME
  5. ALPRAZOLAM [Concomitant]
     Indication: PANIC DISORDER
  6. ALPRAZOLAM [Concomitant]
     Indication: ANXIETY
  7. TOPICAL STEROID [Concomitant]
     Indication: PSORIASIS

REACTIONS (2)
  - DIARRHOEA [None]
  - HYPOKALAEMIA [None]
